FAERS Safety Report 5058426-1 (Version None)
Quarter: 2006Q2

REPORT INFORMATION
  Report Type: 
  Country: None (occurrence: None)
  Receive Date: 20060628
  Receipt Date: 20050802
  Transmission Date: 20061013
  Serious: Yes (Hospitalization)
  Sender: FDA-Public Use
  Company Number: 413000

PATIENT
  Age: 55 Year
  Sex: Female

DRUGS (2)
  1. KLONOPIN [Suspect]
     Indication: DRUG USE FOR UNKNOWN INDICATION
     Route: 065
  2. AVONEX [Concomitant]

REACTIONS (2)
  - CONVULSION [None]
  - DRUG WITHDRAWAL SYNDROME [None]
